FAERS Safety Report 8555390-5 (Version None)
Quarter: 2012Q3

REPORT INFORMATION
  Report Type: 
  Country: None (occurrence: None)
  Receive Date: 20120731
  Receipt Date: 20110819
  Transmission Date: 20120928
  Serious: No
  Sender: FDA-Public Use
  Company Number: US-ASTRAZENECA-2011SE35709

PATIENT
  Age: 64 Year
  Sex: Female
  Weight: 56.7 kg

DRUGS (10)
  1. SEROQUEL [Suspect]
     Indication: SLEEP DISORDER
     Route: 048
  2. SEROQUEL [Suspect]
     Indication: BIPOLAR DISORDER
     Route: 048
  3. POTASSIUM [Concomitant]
  4. MAGNESIUM [Concomitant]
  5. SEROQUEL [Suspect]
     Route: 048
  6. SEROQUEL [Suspect]
     Route: 048
     Dates: start: 20110101
  7. LEXAPRO [Concomitant]
  8. SEROQUEL [Suspect]
     Route: 048
  9. WELLBUTRIN [Concomitant]
  10. SEROQUEL [Suspect]
     Route: 048
     Dates: start: 20110101

REACTIONS (6)
  - DRUG INTOLERANCE [None]
  - PARAESTHESIA [None]
  - OSTEOPOROSIS [None]
  - RESTLESS LEGS SYNDROME [None]
  - INSOMNIA [None]
  - DRUG DOSE OMISSION [None]
